FAERS Safety Report 6092614-0 (Version None)
Quarter: 2009Q1

REPORT INFORMATION
  Report Type: 
  Country: None (occurrence: None)
  Receive Date: 20090225
  Receipt Date: 20090217
  Transmission Date: 20090719
  Serious: Yes (Hospitalization)
  Sender: FDA-Public Use
  Company Number: US-GENENTECH-277527

PATIENT
  Sex: Male

DRUGS (1)
  1. XOLAIR [Suspect]
     Indication: ASTHMA
     Dosage: UNK
     Dates: start: 20080201

REACTIONS (3)
  - CHOLECYSTECTOMY [None]
  - GASTROINTESTINAL DISORDER [None]
  - NAUSEA [None]
